FAERS Safety Report 11262928 (Version 1)
Quarter: 2015Q3

REPORT INFORMATION
  Report Type: Spontaneous
  Country: SE (occurrence: SE)
  Receive Date: 20150710
  Receipt Date: 20150710
  Transmission Date: 20151125
  Serious: Yes (Disabling, Other)
  Sender: FDA-Public Use
  Company Number: SE-ABBVIE-15P-150-1423398-00

PATIENT
  Sex: Male

DRUGS (1)
  1. ERGENYL RETARD [Suspect]
     Active Substance: VALPROIC ACID
     Indication: MATERNAL EXPOSURE TIMING UNSPECIFIED
     Route: 064

REACTIONS (9)
  - Low set ears [Unknown]
  - Foetal anticonvulsant syndrome [Not Recovered/Not Resolved]
  - Congenital hand malformation [Unknown]
  - Mental retardation [Unknown]
  - Foetal exposure during pregnancy [Unknown]
  - Congenital oral malformation [Unknown]
  - Autism [Unknown]
  - Anomaly of external ear congenital [Unknown]
  - Dysmorphism [Unknown]
